FAERS Safety Report 9817939 (Version 17)
Quarter: 2019Q3

REPORT INFORMATION
  Report Type: Report from Study
  Country: CA (occurrence: CA)
  Receive Date: 20140115
  Receipt Date: 20190711
  Transmission Date: 20191005
  Serious: Yes (Other)
  Sender: FDA-Public Use
  Company Number: PHHY2012CA121216

PATIENT
  Age: 53 Year
  Sex: Female

DRUGS (5)
  1. TASIGNA [Suspect]
     Active Substance: NILOTINIB
     Dosage: 3 DF, QD  (450 MG (150 MGX3)
     Route: 048
  2. ACCOLATE [Concomitant]
     Active Substance: ZAFIRLUKAST
     Indication: PRODUCT USED FOR UNKNOWN INDICATION
     Route: 065
  3. TASIGNA [Suspect]
     Active Substance: NILOTINIB
     Indication: CHRONIC MYELOID LEUKAEMIA
     Dosage: 300 MG, BID
     Route: 048
     Dates: start: 20110501
  4. CRESTOR [Concomitant]
     Active Substance: ROSUVASTATIN CALCIUM
     Indication: BLOOD CHOLESTEROL INCREASED
     Dosage: UNK
     Route: 065
     Dates: start: 201109
  5. FLOVENT [Concomitant]
     Active Substance: FLUTICASONE PROPIONATE
     Indication: PRODUCT USED FOR UNKNOWN INDICATION
     Dosage: PRN
     Route: 065

REACTIONS (36)
  - Second primary malignancy [Unknown]
  - Hyperchlorhydria [Unknown]
  - Cardiac murmur [Unknown]
  - Eye haemorrhage [Unknown]
  - Chills [Unknown]
  - Vomiting [Unknown]
  - Basal cell carcinoma [Unknown]
  - Biliary colic [Unknown]
  - Intestinal polyp [Unknown]
  - Malaise [Unknown]
  - Pain in extremity [Unknown]
  - Flatulence [Recovering/Resolving]
  - Stress fracture [Unknown]
  - Brunner^s gland hyperplasia [Unknown]
  - Abdominal pain upper [Recovering/Resolving]
  - Heart valve stenosis [Unknown]
  - Fatigue [Recovering/Resolving]
  - Mitral valve disease [Unknown]
  - Nausea [Unknown]
  - Inappropriate schedule of product administration [Unknown]
  - Blood cholesterol increased [Recovering/Resolving]
  - Rash [Unknown]
  - Arthritis [Unknown]
  - Abdominal discomfort [Recovering/Resolving]
  - Product prescribing error [Unknown]
  - Gastritis [Unknown]
  - Labelled drug-food interaction medication error [Unknown]
  - Hypoaesthesia [Unknown]
  - Ejection fraction decreased [Unknown]
  - Bone pain [Unknown]
  - Electrocardiogram abnormal [Unknown]
  - Feeling abnormal [Unknown]
  - Osteopenia [Unknown]
  - Photosensitivity reaction [Unknown]
  - Tooth fracture [Unknown]
  - Dyspepsia [Recovering/Resolving]

NARRATIVE: CASE EVENT DATE: 20131011
